FAERS Safety Report 8355893-2 (Version None)
Quarter: 2012Q2

REPORT INFORMATION
  Report Type: 
  Country: None (occurrence: None)
  Receive Date: 20120510
  Receipt Date: 20120427
  Transmission Date: 20120825
  Serious: Yes (Other)
  Sender: FDA-Public Use
  Company Number: 2012AP001258

PATIENT
  Age: 79 Year
  Sex: Female

DRUGS (3)
  1. TENORETIC 100 [Concomitant]
  2. RAMIPRIL [Suspect]
     Indication: HYPERTENSION
     Dosage: 2.5 MG;PO ; 10 MG;PO
     Route: 048
     Dates: end: 20120424
  3. RAMIPRIL [Suspect]
     Indication: HYPERTENSION
     Dosage: 2.5 MG;PO ; 10 MG;PO
     Route: 048
     Dates: start: 20120313

REACTIONS (2)
  - HYPERTENSION [None]
  - CONDITION AGGRAVATED [None]
